FAERS Safety Report 5446863-2 (Version None)
Quarter: 2007Q3

REPORT INFORMATION
  Report Type: 
  Country: None (occurrence: None)
  Receive Date: 20070907
  Receipt Date: 20070830
  Transmission Date: 20080115
  Serious: Yes (Hospitalization, Disabling, Other)
  Sender: FDA-Public Use
  Company Number: AT-ABBOTT-07P-009-0415585-00

PATIENT
  Age: 22 Year
  Sex: Female

DRUGS (2)
  1. VALPROIC ACID [Suspect]
     Indication: PARTIAL SEIZURES
     Dosage: 1500 MG DAILY
  2. VALPROIC ACID [Suspect]
     Dosage: NOT REPORTED

REACTIONS (2)
  - METABOLIC DISORDER [None]
  - VISUAL FIELD DEFECT [None]
